FAERS Safety Report 10067192 (Version 2)
Quarter: 2014Q2

REPORT INFORMATION
  Report Type: Spontaneous
  Country: CH (occurrence: None)
  Receive Date: 20140407
  Receipt Date: 20140519
  Transmission Date: 20141212
  Serious: Yes (Hospitalization, Other)
  Sender: FDA-Public Use
  Company Number: 2014-19273

PATIENT
  Age: 78 Year
  Sex: Female

DRUGS (2)
  1. EYLEA (AFLIBERCEPT) INJECTION)AFLIBERCEPT) [Suspect]
     Indication: PRODUCT USED FOR UNKNOWN INDICATION
     Dates: start: 20131213, end: 20131213
  2. EYLEA (AFLIBERCEPT) INJECTION)AFLIBERCEPT) [Suspect]
     Indication: AGE-RELATED MACULAR DEGENERATION
     Dates: start: 20131213, end: 20131213

REACTIONS (6)
  - Cerebral haemorrhage [None]
  - Transient ischaemic attack [None]
  - Dizziness postural [None]
  - Diplopia [None]
  - Motor dysfunction [None]
  - Dysarthria [None]
